FAERS Safety Report 7448535-1 (Version None)
Quarter: 2011Q2

REPORT INFORMATION
  Report Type: 
  Country: None (occurrence: None)
  Receive Date: 20110429
  Receipt Date: 20100521
  Transmission Date: 20111010
  Serious: No
  Sender: FDA-Public Use
  Company Number: US-ASTRAZENECA-2010SE23719

PATIENT
  Age: 70 Year
  Sex: Female
  Weight: 56.7 kg

DRUGS (5)
  1. PRILOSEC OTC [Suspect]
     Route: 048
  2. NEXIUM [Suspect]
     Indication: GASTROOESOPHAGEAL REFLUX DISEASE
     Route: 048
     Dates: start: 20090101
  3. PRILOSEC [Suspect]
     Route: 048
  4. VITAMINS [Concomitant]
  5. NEXIUM [Suspect]
     Route: 048

REACTIONS (6)
  - CONSTIPATION [None]
  - MYALGIA [None]
  - ARTHRALGIA [None]
  - ABDOMINAL PAIN UPPER [None]
  - NAUSEA [None]
  - GLOSSODYNIA [None]
